FAERS Safety Report 15229981 (Version 3)
Quarter: 2020Q3

REPORT INFORMATION
  Report Type: Report from Study
  Country: MY (occurrence: MY)
  Receive Date: 20180802
  Receipt Date: 20180910
  Transmission Date: 20201104
  Serious: Yes (Hospitalization, Other)
  Sender: FDA-Public Use
  Company Number: MY-ROCHE-2142979

PATIENT
  Age: 52 Year
  Sex: Female
  Weight: 62 kg

DRUGS (2)
  1. ALECTINIB. [Suspect]
     Active Substance: ALECTINIB
     Indication: LUNG NEOPLASM MALIGNANT
     Route: 048
     Dates: start: 20180526
  2. ALECTINIB. [Suspect]
     Active Substance: ALECTINIB
     Indication: ADENOCARCINOMA
     Route: 048

REACTIONS (4)
  - Abnormal behaviour [Not Recovered/Not Resolved]
  - Hypomania [Not Recovered/Not Resolved]
  - Affective disorder [Recovering/Resolving]
  - Metastases to liver [Unknown]

NARRATIVE: CASE EVENT DATE: 20180614
